FAERS Safety Report 26137170 (Version 1)
Quarter: 2025Q4

REPORT INFORMATION
  Report Type: Spontaneous
  Country: BR (occurrence: BR)
  Receive Date: 20251209
  Receipt Date: 20251209
  Transmission Date: 20260118
  Serious: Yes (Other)
  Sender: NOVO NORDISK
  Company Number: BR-NOVOPROD-1577611

PATIENT
  Age: 44 Year
  Sex: Male

DRUGS (2)
  1. INSULIN HUMAN [Suspect]
     Active Substance: INSULIN HUMAN
     Indication: Type 1 diabetes mellitus
     Dosage: NOT REPORTED
     Dates: start: 2020
  2. INSULIN NOS [Suspect]
     Active Substance: INSULIN NOS
     Indication: Type 1 diabetes mellitus
     Dosage: UNK
     Dates: start: 2020

REACTIONS (8)
  - Tremor [Unknown]
  - Pallor [Unknown]
  - Palpitations [Unknown]
  - Presyncope [Unknown]
  - Diabetes mellitus inadequate control [Unknown]
  - Near death experience [Unknown]
  - Blood insulin decreased [Unknown]
  - Glycosylated haemoglobin increased [Unknown]

NARRATIVE: CASE EVENT DATE: 20251125
